FAERS Safety Report 9884972 (Version 2)
Quarter: 2014Q1

REPORT INFORMATION
  Report Type: Spontaneous
  Country: US (occurrence: US)
  Receive Date: 20140210
  Receipt Date: 20140210
  Transmission Date: 20141002
  Serious: Yes (Hospitalization)
  Sender: FDA-Public Use
  Company Number: US-JNJFOC-20140110530

PATIENT
  Age: 69 Year
  Sex: Female
  Weight: 63.5 kg

DRUGS (12)
  1. XARELTO [Suspect]
     Indication: THROMBOSIS PROPHYLAXIS
     Route: 048
     Dates: start: 20131220, end: 20131230
  2. XARELTO [Suspect]
     Indication: THROMBOSIS PROPHYLAXIS
     Route: 048
     Dates: start: 20131220, end: 20131230
  3. ASPIRIN [Suspect]
     Indication: CARDIOVASCULAR DISORDER
     Route: 065
  4. LASIX [Concomitant]
     Route: 048
  5. METFORMIN [Concomitant]
     Route: 048
  6. METOPROLOL [Concomitant]
     Route: 048
  7. LISINOPRIL [Concomitant]
     Route: 048
  8. SPIRIVA [Concomitant]
     Route: 055
  9. ALBUTEROL [Concomitant]
     Dosage: 2 PUFFS OF 4TH PRN
     Route: 048
  10. ATORVASTATIN [Concomitant]
     Dosage: BEDTIME
     Route: 048
  11. NITROSTAT [Concomitant]
     Route: 065
  12. LORAZEPAM [Concomitant]
     Dosage: 1 TABLET
     Route: 048

REACTIONS (2)
  - Gastrointestinal haemorrhage [Recovered/Resolved]
  - Haemoglobin decreased [Unknown]
